FAERS Safety Report 4296329-0 (Version None)
Quarter: 2004Q1

REPORT INFORMATION
  Report Type: 
  Country: None (occurrence: None)
  Receive Date: 20040213
  Receipt Date: 20040213
  Transmission Date: 20041129
  Serious: Yes (Hospitalization)
  Sender: FDA-Public Use
  Company Number: None

PATIENT
  Sex: Female
  Weight: 121.1104 kg

DRUGS (12)
  1. POTASSIUM CHLORIDE [Suspect]
     Indication: MINERAL SUPPLEMENTATION
     Dosage: 10 MEQ PO QD
     Route: 048
  2. PRAVACHOL [Concomitant]
  3. GLUCOVANCE [Concomitant]
  4. LASIX [Concomitant]
  5. COUMADIN [Concomitant]
  6. PROTONIX [Concomitant]
  7. POTASSIUM [Concomitant]
  8. COREG [Concomitant]
  9. DIGOXIN [Concomitant]
  10. AMARYL [Concomitant]
  11. FLOMAX [Concomitant]
  12. AVAPRO [Concomitant]

REACTIONS (1)
  - BLOOD POTASSIUM INCREASED [None]
